FAERS Safety Report 8821272 (Version 1)
Quarter: 2012Q4

REPORT INFORMATION
  Report Type: 
  Country: DE (occurrence: DE)
  Receive Date: 20121002
  Receipt Date: 20121002
  Transmission Date: 20130627
  Serious: Yes (Hospitalization)
  Sender: FDA-Public Use
  Company Number: DE-WATSON-2012-16826

PATIENT
  Age: 33 Year
  Sex: Male

DRUGS (7)
  1. TESTOSTERONE ENANTATE [Suspect]
     Indication: SUBSTANCE ABUSE
     Dosage: 2-3 times usual doping amount
     Route: 065
  2. NANDROLONE [Suspect]
     Indication: SUBSTANCE ABUSE
     Route: 065
  3. METANDIENONE [Suspect]
     Indication: SUBSTANCE ABUSE
     Dosage: UNK
     Route: 065
  4. CLENBUTEROL [Suspect]
     Indication: SUBSTANCE ABUSE
     Route: 065
  5. STANOZOLOL [Suspect]
     Indication: SUBSTANCE ABUSE
     Dosage: UNK
     Route: 065
  6. COCAINE [Suspect]
     Indication: SUBSTANCE ABUSE
     Route: 065
  7. AMPHETAMINE [Suspect]
     Indication: SUBSTANCE ABUSE
     Route: 065

REACTIONS (7)
  - Rhabdomyolysis [Recovered/Resolved]
  - Multi-organ failure [Recovered/Resolved]
  - Renal failure acute [Recovered/Resolved]
  - Hyperthermia [Recovered/Resolved]
  - Overdose [Recovered/Resolved]
  - Substance abuse [Recovered/Resolved]
  - Delirium [None]
